FAERS Safety Report 9797582 (Version 1)
Quarter: 2014Q1

REPORT INFORMATION
  Report Type: Spontaneous
  Country: US (occurrence: None)
  Receive Date: 20140102
  Receipt Date: 20140102
  Transmission Date: 20141002
  Serious: Yes (Other)
  Sender: FDA-Public Use
  Company Number: None

PATIENT
  Age: 64 Year
  Sex: Female
  Weight: 88 kg

DRUGS (1)
  1. XARELTO [Suspect]
     Dosage: 2 PILLS
     Route: 048

REACTIONS (2)
  - Urticaria [None]
  - Pruritus [None]
